FAERS Safety Report 7088774-5 (Version None)
Quarter: 2010Q4

REPORT INFORMATION
  Report Type: 
  Country: None (occurrence: None)
  Receive Date: 20101108
  Receipt Date: 20101025
  Transmission Date: 20110411
  Serious: Yes (Other)
  Sender: FDA-Public Use
  Company Number: PHHY2010US60271

PATIENT
  Sex: Female
  Weight: 157 kg

DRUGS (4)
  1. RECLAST [Suspect]
     Indication: OSTEOPOROSIS
     Dosage: 5 MG/ 100 ML
     Route: 042
     Dates: start: 20100820
  2. SINGULAIR [Concomitant]
     Route: 048
  3. ESTRADIOL [Concomitant]
     Dosage: 2 MG
     Route: 048
     Dates: start: 20100729
  4. CALCIUM [Concomitant]
     Dosage: 1000 MG
     Route: 048

REACTIONS (6)
  - ALOPECIA [None]
  - ARTHRALGIA [None]
  - DYSPEPSIA [None]
  - INFLUENZA LIKE ILLNESS [None]
  - KIDNEY INFECTION [None]
  - WEIGHT INCREASED [None]
